FAERS Safety Report 7105056-3 (Version None)
Quarter: 2010Q4

REPORT INFORMATION
  Report Type: 
  Country: None (occurrence: None)
  Receive Date: 20101116
  Receipt Date: 20080804
  Transmission Date: 20110411
  Serious: No
  Sender: FDA-Public Use
  Company Number: US-KINGPHARMUSA00001-K200800920

PATIENT
  Age: 45 Year
  Sex: Male
  Weight: 97.052 kg

DRUGS (7)
  1. SEPTRA [Suspect]
     Indication: EAR INFECTION
     Route: 048
     Dates: start: 20080627, end: 20080703
  2. XYREM [Suspect]
     Indication: NARCOLEPSY
     Dosage: 3 G, BID
     Route: 048
     Dates: start: 20080627, end: 20080703
  3. WATER PILL [Concomitant]
     Dosage: UNK, UNK
  4. CHOLESTYRAMINE [Concomitant]
     Indication: PRURITUS
  5. D-AMPHETAMINE [Concomitant]
     Indication: NARCOLEPSY
  6. TRAMADOL HCL [Concomitant]
  7. STOMACH MEDICATION [Concomitant]
     Dates: start: 20080627

REACTIONS (1)
  - PRURITUS GENERALISED [None]
